FAERS Safety Report 14609145 (Version 1)
Quarter: 2018Q1

REPORT INFORMATION
  Report Type: Spontaneous
  Country: US (occurrence: US)
  Receive Date: 20180307
  Receipt Date: 20180307
  Transmission Date: 20180509
  Serious: Yes (Other)
  Sender: FDA-Public Use
  Company Number: US-ASTRAZENECA-2018SE22384

PATIENT
  Sex: Male
  Weight: 90.7 kg

DRUGS (9)
  1. PLAVIX [Concomitant]
     Active Substance: CLOPIDOGREL BISULFATE
     Indication: STENT PLACEMENT
     Dates: start: 20171024
  2. PRILOSEC OTC [Suspect]
     Active Substance: OMEPRAZOLE MAGNESIUM
     Indication: DYSPEPSIA
     Route: 048
  3. ASPIRIN. [Concomitant]
     Active Substance: ASPIRIN
     Indication: ADJUVANT THERAPY
     Route: 048
  4. AMLODIPINE [Concomitant]
     Active Substance: AMLODIPINE BESYLATE
     Indication: BLOOD PRESSURE ABNORMAL
     Route: 048
  5. BRILINTA [Suspect]
     Active Substance: TICAGRELOR
     Indication: ARTERIAL STENT INSERTION
     Route: 048
     Dates: start: 201712
  6. GLYCERYL TRINITRATE [Suspect]
     Active Substance: NITROGLYCERIN
     Indication: CHEST PAIN
     Dosage: 0.4MG AS REQUIRED
     Route: 060
  7. GENERIC LIPITOR [Concomitant]
     Active Substance: ATORVASTATIN CALCIUM
     Indication: BLOOD CHOLESTEROL ABNORMAL
     Route: 048
  8. HYDROCHLOROTHIAZIDE. [Concomitant]
     Active Substance: HYDROCHLOROTHIAZIDE
     Indication: DIURETIC THERAPY
     Route: 048
  9. METOPROLOL TARTRATE. [Suspect]
     Active Substance: METOPROLOL TARTRATE
     Indication: BLOOD PRESSURE ABNORMAL
     Route: 048

REACTIONS (24)
  - Feeling abnormal [Recovered/Resolved]
  - Device occlusion [Not Recovered/Not Resolved]
  - Vision blurred [Recovered/Resolved]
  - Dyspnoea exertional [Not Recovered/Not Resolved]
  - Neck pain [Not Recovered/Not Resolved]
  - Hypoaesthesia [Not Recovered/Not Resolved]
  - Paraesthesia [Unknown]
  - Dizziness [Recovered/Resolved]
  - Vascular injury [Unknown]
  - Intervertebral disc disorder [Not Recovered/Not Resolved]
  - Musculoskeletal pain [Unknown]
  - Nausea [Recovered/Resolved]
  - Lethargy [Unknown]
  - Intentional product misuse [Recovered/Resolved]
  - Coronary artery occlusion [Unknown]
  - Type 2 diabetes mellitus [Not Recovered/Not Resolved]
  - Eructation [Unknown]
  - Cardiac disorder [Recovered/Resolved]
  - Nerve injury [Not Recovered/Not Resolved]
  - Fatigue [Recovered/Resolved]
  - Blood glucose increased [Recovered/Resolved]
  - Pain in extremity [Not Recovered/Not Resolved]
  - Abdominal pain upper [Not Recovered/Not Resolved]
  - Chest pain [Not Recovered/Not Resolved]
